FAERS Safety Report 18087089 (Version 6)
Quarter: 2021Q2

REPORT INFORMATION
  Report Type: Spontaneous
  Country: US (occurrence: US)
  Receive Date: 20200729
  Receipt Date: 20210618
  Transmission Date: 20210717
  Serious: Yes (Other)
  Sender: FDA-Public Use
  Company Number: US-PFIZER INC-2020287495

PATIENT
  Age: 70 Year
  Sex: Female

DRUGS (2)
  1. IBRANCE [Suspect]
     Active Substance: PALBOCICLIB
     Indication: BREAST CANCER METASTATIC
     Dosage: 100 MG
     Dates: start: 20181121, end: 20210607
  2. LETROZOLE. [Suspect]
     Active Substance: LETROZOLE
     Indication: BREAST CANCER METASTATIC
     Dosage: UNK
     Dates: start: 20181121, end: 20210607

REACTIONS (12)
  - Spondylitis [Unknown]
  - Infection [Unknown]
  - Urinary tract infection [Unknown]
  - Neoplasm progression [Unknown]
  - Dry eye [Unknown]
  - Bowel movement irregularity [Recovered/Resolved]
  - Eye pruritus [Unknown]
  - Asthenia [Unknown]
  - Skin disorder [Unknown]
  - Alopecia [Unknown]
  - Fatigue [Unknown]
  - Lacrimation increased [Unknown]
